FAERS Safety Report 19132865 (Version 1)
Quarter: 2021Q2

REPORT INFORMATION
  Report Type: Spontaneous
  Country: US (occurrence: US)
  Receive Date: 20210413
  Receipt Date: 20210413
  Transmission Date: 20210717
  Serious: Yes (Other)
  Sender: FDA-Public Use
  Company Number: None

PATIENT
  Age: 83 Year
  Sex: Male
  Weight: 92.25 kg

DRUGS (8)
  1. ATORVASTATIN [Concomitant]
     Active Substance: ATORVASTATIN
  2. LISINOPRIL. [Concomitant]
     Active Substance: LISINOPRIL
  3. CASODEX [Concomitant]
     Active Substance: BICALUTAMIDE
  4. LABETALOL [Concomitant]
     Active Substance: LABETALOL\LABETALOL HYDROCHLORIDE
  5. ERLEADA [Suspect]
     Active Substance: APALUTAMIDE
     Indication: PROSTATE CANCER
     Route: 048
     Dates: start: 20201010
  6. ELIQUIS [Concomitant]
     Active Substance: APIXABAN
  7. CALCIUM 500+D [Concomitant]
     Active Substance: CALCIUM\VITAMIN D
  8. AMLODIPINE [Concomitant]
     Active Substance: AMLODIPINE BESYLATE

REACTIONS (5)
  - Fatigue [None]
  - Myalgia [None]
  - Confusional state [None]
  - Gait disturbance [None]
  - Alopecia [None]

NARRATIVE: CASE EVENT DATE: 20210413
